FAERS Safety Report 8595842-5 (Version None)
Quarter: 2012Q3

REPORT INFORMATION
  Report Type: 
  Country: None (occurrence: None)
  Receive Date: 20120815
  Receipt Date: 19910606
  Transmission Date: 20120928
  Serious: Yes (Other)
  Sender: FDA-Public Use
  Company Number: US-ROCHE-1097857

PATIENT
  Age: 45 Year
  Sex: Female

DRUGS (2)
  1. ACTIVASE [Suspect]
     Indication: ACUTE MYOCARDIAL INFARCTION
  2. INSULIN [Concomitant]

REACTIONS (1)
  - PAIN [None]
